FAERS Safety Report 19315477 (Version 1)
Quarter: 2021Q2

REPORT INFORMATION
  Report Type: Report from Study
  Country: CA (occurrence: CA)
  Receive Date: 20210527
  Receipt Date: 20210527
  Transmission Date: 20210717
  Serious: Yes (Hospitalization, Other)
  Sender: FDA-Public Use
  Company Number: PHHY2014CA120514

PATIENT
  Age: 64 Year
  Sex: Female

DRUGS (7)
  1. COVERSYL//PERINDOPRIL ARGININE [Concomitant]
     Active Substance: PERINDOPRIL ARGININE
     Indication: BLOOD PRESSURE SYSTOLIC INCREASED
     Dosage: UNK
     Route: 065
  2. SANDOSTATIN LAR DEPOT [Suspect]
     Active Substance: OCTREOTIDE ACETATE
     Dosage: 20 MG, QMO (EVERY 4 WEEKS)
     Route: 030
     Dates: start: 20190119
  3. SANDOSTATIN LAR DEPOT [Suspect]
     Active Substance: OCTREOTIDE ACETATE
     Indication: METASTATIC CARCINOID TUMOUR
     Dosage: 20 MG, QMO (EVERY 4 WEEKS)
     Route: 030
     Dates: start: 20140722
  4. SANDOSTATIN LAR DEPOT [Suspect]
     Active Substance: OCTREOTIDE ACETATE
  5. CELEBREX [Suspect]
     Active Substance: CELECOXIB
     Dosage: 1 DF
     Route: 065
  6. CODEINE [Suspect]
     Active Substance: CODEINE
     Indication: PRODUCT USED FOR UNKNOWN INDICATION
     Dosage: UNK
     Route: 065
  7. CELEBREX [Suspect]
     Active Substance: CELECOXIB
     Indication: MUSCLE STRAIN
     Dosage: 400 MG
     Route: 065

REACTIONS (34)
  - Blood pressure systolic increased [Unknown]
  - Feeling hot [Unknown]
  - Haematocrit decreased [Recovering/Resolving]
  - Platelet count increased [Recovering/Resolving]
  - Therapeutic product effect delayed [Unknown]
  - Nervousness [Unknown]
  - Back pain [Unknown]
  - Feeling cold [Unknown]
  - Influenza [Recovering/Resolving]
  - Myalgia [Recovering/Resolving]
  - Abdominal pain [Unknown]
  - Blood pressure increased [Unknown]
  - Pain [Unknown]
  - C-reactive protein increased [Recovering/Resolving]
  - Fall [Unknown]
  - Contusion [Unknown]
  - Spinal osteoarthritis [Unknown]
  - Arthralgia [Unknown]
  - Gamma-glutamyltransferase increased [Recovering/Resolving]
  - Muscle strain [Unknown]
  - Fatigue [Unknown]
  - Injection site haemorrhage [Recovered/Resolved]
  - Haemoglobin decreased [Recovering/Resolving]
  - Stress [Unknown]
  - Acne [Unknown]
  - Cough [Recovering/Resolving]
  - Injection site haematoma [Unknown]
  - Musculoskeletal discomfort [Not Recovered/Not Resolved]
  - Nasopharyngitis [Recovering/Resolving]
  - Urticaria [Unknown]
  - Product quality issue [Unknown]
  - Injection site mass [Recovered/Resolved]
  - Scar [Unknown]
  - Injection site bruising [Recovered/Resolved]

NARRATIVE: CASE EVENT DATE: 20140912
